FAERS Safety Report 4303749-4 (Version None)
Quarter: 2004Q1

REPORT INFORMATION
  Report Type: 
  Country: None (occurrence: None)
  Receive Date: 20040225
  Receipt Date: 20040213
  Transmission Date: 20041129
  Serious: Yes (Other)
  Sender: FDA-Public Use
  Company Number: PHFR2004GB01028

PATIENT
  Age: 40 Year
  Sex: Male

DRUGS (3)
  1. CLOZARIL [Suspect]
     Indication: SCHIZOPHRENIA
     Route: 048
     Dates: start: 20020202
  2. DISULFIRAM [Concomitant]
     Route: 065
  3. ANTIDEPRESSANTS [Concomitant]
     Route: 065

REACTIONS (1)
  - DYSPHEMIA [None]
